FAERS Safety Report 6328053-4 (Version None)
Quarter: 2009Q3

REPORT INFORMATION
  Report Type: 
  Country: None (occurrence: None)
  Receive Date: 20090825
  Receipt Date: 20081110
  Transmission Date: 20100115
  Serious: No
  Sender: FDA-Public Use
  Company Number: US-ABBOTT-08P-163-0487201-00

PATIENT
  Sex: Female

DRUGS (3)
  1. SYNTHROID [Suspect]
     Indication: THYROIDECTOMY
     Route: 048
     Dates: start: 20070301
  2. SYNTHROID [Suspect]
     Indication: THYROID NEOPLASM
     Dosage: 100 MCG DAILY
     Route: 048
     Dates: start: 20081101
  3. VERAPAMIL [Concomitant]
     Indication: DRUG USE FOR UNKNOWN INDICATION

REACTIONS (2)
  - ALOPECIA [None]
  - BLOOD THYROID STIMULATING HORMONE INCREASED [None]
